APPROVED DRUG PRODUCT: RISPERIDONE
Active Ingredient: RISPERIDONE
Strength: 0.5MG
Dosage Form/Route: TABLET;ORAL
Application: A078828 | Product #002 | TE Code: AB
Applicant: JUBILANT CADISTA PHARMACEUTICALS INC
Approved: Mar 23, 2009 | RLD: No | RS: No | Type: RX